FAERS Safety Report 14977176 (Version 2)
Quarter: 2018Q2

REPORT INFORMATION
  Report Type: Spontaneous
  Country: US (occurrence: US)
  Receive Date: 20180606
  Receipt Date: 20180614
  Transmission Date: 20180711
  Serious: No
  Sender: FDA-Public Use
  Company Number: US-CELGENEUS-USA-20180511412

PATIENT
  Age: 27 Year
  Sex: Female

DRUGS (4)
  1. OTEZLA [Suspect]
     Active Substance: APREMILAST
     Dosage: 60 MILLIGRAM
     Route: 048
     Dates: start: 2018
  2. DOXYCYCLINE. [Concomitant]
     Active Substance: DOXYCYCLINE
     Indication: ACNE
     Dosage: 200 MILLIGRAM
     Route: 065
     Dates: start: 201701
  3. OTEZLA [Suspect]
     Active Substance: APREMILAST
     Indication: NAIL PSORIASIS
     Dosage: 60 MILLIGRAM
     Route: 048
     Dates: start: 20171106
  4. SPIRONOLACTONE. [Concomitant]
     Active Substance: SPIRONOLACTONE
     Indication: ACNE
     Dosage: 50 MILLIGRAM
     Route: 065
     Dates: start: 201701

REACTIONS (2)
  - Nail psoriasis [Recovered/Resolved]
  - Drug dose omission [Unknown]

NARRATIVE: CASE EVENT DATE: 201804
